FAERS Safety Report 21443461 (Version 1)
Quarter: 2022Q4

REPORT INFORMATION
  Report Type: Report from Study
  Country: US (occurrence: US)
  Receive Date: 20221012
  Receipt Date: 20221012
  Transmission Date: 20230112
  Serious: No
  Sender: FDA-Public Use
  Company Number: US-NOVARTISTESTPH-NVSC2022US229137

PATIENT
  Sex: Female
  Weight: 101.13 kg

DRUGS (1)
  1. FILGRASTIM [Suspect]
     Active Substance: FILGRASTIM
     Indication: Agranulocytosis
     Dosage: 480 UG, QD, (FOR 5 DAYS OF A 14 DAY CYCLE)
     Route: 058
     Dates: start: 20220922

REACTIONS (1)
  - Fatigue [Unknown]
